FAERS Safety Report 25280759 (Version 14)
Quarter: 2025Q3

REPORT INFORMATION
  Report Type: Report from Study
  Country: CA (occurrence: CA)
  Receive Date: 20250508
  Receipt Date: 20250925
  Transmission Date: 20251021
  Serious: Yes (Hospitalization, Other)
  Sender: CELLTRION
  Company Number: CA-CELLTRION INC.-2024CA028492

PATIENT

DRUGS (3)
  1. USTEKINUMAB [Suspect]
     Active Substance: USTEKINUMAB
     Indication: Crohn^s disease
     Dosage: 90 MG Q4WEEKS/ ONCE EVERY 4 WEEK(S)
     Route: 058
     Dates: start: 20241205
  2. USTEKINUMAB [Suspect]
     Active Substance: USTEKINUMAB
     Dates: start: 20250602
  3. USTEKINUMAB [Suspect]
     Active Substance: USTEKINUMAB
     Dosage: 1 ML ONCE 4 WEEKS
     Route: 058

REACTIONS (18)
  - Renal disorder [Not Recovered/Not Resolved]
  - Prostatic abscess [Not Recovered/Not Resolved]
  - Condition aggravated [Not Recovered/Not Resolved]
  - Renal impairment [Unknown]
  - Diabetes mellitus [Unknown]
  - Renal pain [Not Recovered/Not Resolved]
  - Impaired healing [Unknown]
  - Abdominal pain [Not Recovered/Not Resolved]
  - Urinary tract infection [Not Recovered/Not Resolved]
  - Intentional dose omission [Not Recovered/Not Resolved]
  - Off label use [Not Recovered/Not Resolved]
  - Bowel movement irregularity [Unknown]
  - Eating disorder symptom [Not Recovered/Not Resolved]
  - Abdominal pain [Unknown]
  - Lower urinary tract symptoms [Not Recovered/Not Resolved]
  - Diarrhoea [Not Recovered/Not Resolved]
  - Diarrhoea [Unknown]
  - Diarrhoea [Unknown]

NARRATIVE: CASE EVENT DATE: 20250430
